FAERS Safety Report 8932393 (Version 1)
Quarter: 2012Q4

REPORT INFORMATION
  Report Type: 
  Country: FR (occurrence: FR)
  Receive Date: 20121128
  Receipt Date: 20121128
  Transmission Date: 20130627
  Serious: Yes (Hospitalization)
  Sender: FDA-Public Use
  Company Number: FR-JNJFOC-20121112147

PATIENT
  Age: 86 Year
  Sex: Male

DRUGS (10)
  1. DUROGESIC [Suspect]
     Indication: PRODUCT USED FOR UNKNOWN INDICATION
     Route: 062
     Dates: start: 20120629, end: 20120629
  2. SKENAN [Suspect]
     Indication: PRODUCT USED FOR UNKNOWN INDICATION
     Dosage: seven 10 mg capsules
     Route: 048
     Dates: start: 20120629, end: 20120630
  3. ACTISKENAN [Suspect]
     Indication: PRODUCT USED FOR UNKNOWN INDICATION
     Dosage: five 10 mg capsules
     Route: 048
     Dates: start: 20120629, end: 20120630
  4. TEMESTA [Suspect]
     Indication: PRODUCT USED FOR UNKNOWN INDICATION
     Route: 048
     Dates: start: 2006, end: 20121004
  5. ZESTRIL [Suspect]
     Indication: HYPERTENSION
     Route: 048
     Dates: start: 2006, end: 20120630
  6. FLUDEX [Concomitant]
     Indication: PRODUCT USED FOR UNKNOWN INDICATION
     Route: 065
  7. ZOLOFT [Concomitant]
     Indication: PRODUCT USED FOR UNKNOWN INDICATION
     Route: 065
  8. ZOMETA [Concomitant]
     Indication: PRODUCT USED FOR UNKNOWN INDICATION
     Route: 065
  9. CASODEX [Concomitant]
     Indication: PRODUCT USED FOR UNKNOWN INDICATION
     Route: 065
  10. ENANTONE [Concomitant]
     Indication: PRODUCT USED FOR UNKNOWN INDICATION
     Route: 065

REACTIONS (5)
  - Renal failure acute [Recovered/Resolved]
  - Confusional state [Recovered/Resolved]
  - Disorientation [Recovered/Resolved]
  - Agitation [Recovered/Resolved]
  - Urinary retention [Recovered/Resolved]
